FAERS Safety Report 7045847-0 (Version None)
Quarter: 2010Q4

REPORT INFORMATION
  Report Type: 
  Country: None (occurrence: None)
  Receive Date: 20101014
  Receipt Date: 20100921
  Transmission Date: 20110411
  Serious: Yes (Other)
  Sender: FDA-Public Use
  Company Number: PHHY2010BR66349

PATIENT
  Age: 58 Year
  Sex: Male
  Weight: 91 kg

DRUGS (7)
  1. ALISKIREN [Suspect]
     Dosage: 150 MG/DAY
  2. ALISKIREN [Suspect]
     Dosage: 300 MG PER DAY
  3. METFORMIN [Suspect]
     Dosage: 1000 MG
  4. METFORMIN [Suspect]
     Dosage: 2 G/DAY
  5. CARVEDILOL [Suspect]
     Dosage: 25 MG
  6. CARVEDILOL [Suspect]
     Dosage: 50 MG/DAY
  7. FUROSEMIDE [Suspect]

REACTIONS (5)
  - LEFT VENTRICULAR DYSFUNCTION [None]
  - MICROALBUMINURIA [None]
  - OEDEMA PERIPHERAL [None]
  - PROTEINURIA [None]
  - WEIGHT DECREASED [None]
